FAERS Safety Report 4964034-0 (Version None)
Quarter: 2006Q1

REPORT INFORMATION
  Report Type: 
  Country: None (occurrence: None)
  Receive Date: 20060330
  Receipt Date: 20060317
  Transmission Date: 20060701
  Serious: Yes (Other)
  Sender: FDA-Public Use
  Company Number: SU-2006-004753

PATIENT
  Age: 62 Year
  Sex: Female
  Weight: 65.7716 kg

DRUGS (2)
  1. WELCHOL [Suspect]
     Indication: BLOOD CHOLESTEROL INCREASED
     Dosage: 1875 MG BID PO
     Route: 048
     Dates: start: 20051101
  2. PREMARIN [Concomitant]

REACTIONS (1)
  - AUTOIMMUNE HEPATITIS [None]
